FAERS Safety Report 4794898-5 (Version None)
Quarter: 2005Q4

REPORT INFORMATION
  Report Type: 
  Country: None (occurrence: None)
  Receive Date: 20051012
  Receipt Date: 20050930
  Transmission Date: 20060501
  Serious: Yes (Death)
  Sender: FDA-Public Use
  Company Number: AT-BOEHRINGER INGELHEIM PHARMACEUTICALS, INC.-2005-DE-04054GD

PATIENT
  Age: 58 Year
  Sex: Male

DRUGS (14)
  1. MORPHINE [Suspect]
     Indication: NEURALGIA
     Dosage: 5 MG/H WITH OPTIONAL 10 MG BOLUS DOSES UP TO 4 PER H
     Route: 042
  2. MORPHINE [Suspect]
     Dosage: 3.6 MG - 120 MG
     Route: 037
  3. CLONIDINE [Suspect]
     Indication: NEURALGIA
     Dosage: 57.6 - 450 MCG
     Route: 037
  4. BUPIVACAINE [Suspect]
     Indication: NEURALGIA
     Dosage: 30 - 180 MG
     Route: 037
  5. MEFENAMIC ACID [Suspect]
     Indication: NEURALGIA
     Route: 048
  6. MEFENAMIC ACID [Suspect]
     Route: 048
  7. CARBAMAZEPINE [Suspect]
     Indication: NEURALGIA
     Dosage: 200 - 1400 MG
     Route: 048
  8. AMITRIPTYLINE HCL [Suspect]
     Indication: NEURALGIA
     Dosage: 25 - 75 MG
     Route: 048
  9. FENTANYL [Suspect]
     Indication: NEURALGIA
     Dosage: 200 MCG/H
     Route: 062
  10. KETAMINE [Suspect]
     Indication: NEURALGIA
     Dosage: 7.5 - 50 MG
     Route: 037
  11. CITALOPRAM [Concomitant]
     Route: 048
  12. DEXAMETHASONE [Concomitant]
     Dosage: 40 - 4 MG
     Route: 048
  13. GABAPENTIN [Concomitant]
     Dosage: 400 - 3600 MG
     Route: 048
  14. OMEPRAZOLE [Concomitant]
     Route: 048

REACTIONS (4)
  - DEATH [None]
  - DRUG INEFFECTIVE [None]
  - DRUG TOLERANCE [None]
  - NEURALGIA [None]
